FAERS Safety Report 8069342-5 (Version None)
Quarter: 2012Q1

REPORT INFORMATION
  Report Type: 
  Country: None (occurrence: None)
  Receive Date: 20120118
  Receipt Date: 20120109
  Transmission Date: 20120608
  Serious: Yes (Death)
  Sender: FDA-Public Use
  Company Number: JPI-P-015065

PATIENT
  Age: 75 Year
  Sex: Male

DRUGS (1)
  1. XYREM [Suspect]
     Indication: PRODUCT USED FOR UNKNOWN INDICATION
     Dosage: ORAL
     Route: 048
     Dates: end: 20031109

REACTIONS (3)
  - HEPATIC NEOPLASM MALIGNANT [None]
  - BONE NEOPLASM MALIGNANT [None]
  - RESPIRATORY FAILURE [None]
